FAERS Safety Report 16465161 (Version 2)
Quarter: 2019Q2

REPORT INFORMATION
  Report Type: Spontaneous
  Country: IT (occurrence: IT)
  Receive Date: 20190621
  Receipt Date: 20190628
  Transmission Date: 20190711
  Serious: Yes (Other)
  Sender: FDA-Public Use
  Company Number: IT-SHIRE-IT201919447

PATIENT

DRUGS (4)
  1. FACTOR VIIA, RECOMBINANT [Concomitant]
     Active Substance: COAGULATION FACTOR VIIA RECOMBINANT HUMAN
     Indication: PROPHYLAXIS
  2. COAGULATION FACTOR VIII(RECOMBINANT) [Suspect]
     Active Substance: ANTIHEMOPHILIC FACTOR, HUMAN RECOMBINANT
     Indication: FACTOR VIII DEFICIENCY
     Dosage: 50 INTERNATIONAL UNIT/KILOGRAM, 1X/WEEK (20 EXPOSURE DAYS TO THE TREATMENT)
     Route: 065
  3. COAGULATION FACTOR VIII(RECOMBINANT) [Suspect]
     Active Substance: ANTIHEMOPHILIC FACTOR, HUMAN RECOMBINANT
     Dosage: 200 INTERNATIONAL UNIT/KILOGRAM, 1X/DAY:QD
     Route: 065
  4. TUROCTOCOG ALFA [Concomitant]
     Active Substance: TUROCTOCOG ALFA
     Indication: FACTOR VIII DEFICIENCY

REACTIONS (4)
  - Traumatic haematoma [Unknown]
  - Anti factor VIII antibody increased [Unknown]
  - Spontaneous haematoma [Unknown]
  - Drug ineffective [Unknown]
